FAERS Safety Report 15665213 (Version 1)
Quarter: 2018Q4

REPORT INFORMATION
  Report Type: Spontaneous
  Country: US (occurrence: US)
  Receive Date: 20181128
  Receipt Date: 20181128
  Transmission Date: 20190205
  Serious: No
  Sender: FDA-Public Use
  Company Number: US-PERRIGO-17US027769

PATIENT
  Age: 37 Year
  Sex: Male
  Weight: 72.56 kg

DRUGS (3)
  1. NICOTINE POLACRILEX [Suspect]
     Active Substance: NICOTINE
     Dosage: 4 MG, UP TO 20 TIMES DAILY, PRN
     Route: 002
     Dates: start: 20171025
  2. NICOTINE POLACRILEX [Suspect]
     Active Substance: NICOTINE
     Indication: SMOKING CESSATION THERAPY
     Dosage: 4 MG, UP TO 20 TIMES DAILY, PRN
     Route: 002
     Dates: start: 2016, end: 20171021
  3. NICOTINE POLACRILEX [Suspect]
     Active Substance: NICOTINE
     Dosage: 8 MG, EIGHT TIMES TOTAL
     Route: 002
     Dates: start: 20171022, end: 20171025

REACTIONS (2)
  - Incorrect dose administered [Recovered/Resolved]
  - Drug effect decreased [Recovered/Resolved]

NARRATIVE: CASE EVENT DATE: 20171022
